FAERS Safety Report 4883190-6 (Version None)
Quarter: 2006Q1

REPORT INFORMATION
  Report Type: 
  Country: None (occurrence: None)
  Receive Date: 20060118
  Receipt Date: 20060109
  Transmission Date: 20060701
  Serious: Yes (Hospitalization)
  Sender: FDA-Public Use
  Company Number: 2006CG00066

PATIENT
  Age: 35 Year
  Sex: Female

DRUGS (11)
  1. MOPRAL [Suspect]
     Route: 048
     Dates: start: 20040309, end: 20040326
  2. TAVANIC [Concomitant]
     Route: 048
     Dates: start: 20040309, end: 20040321
  3. CETIRIZINE HCL [Concomitant]
     Route: 048
     Dates: start: 20040305, end: 20040324
  4. ATARAX [Concomitant]
     Route: 048
     Dates: start: 20040305, end: 20040326
  5. DI-HYDAN [Concomitant]
     Indication: GRAND MAL CONVULSION
     Route: 048
     Dates: start: 20040113, end: 20040324
  6. TRIFLUCAN [Concomitant]
     Route: 048
     Dates: start: 20040303, end: 20040323
  7. NEO-MERCAZOLE TAB [Concomitant]
     Route: 048
     Dates: start: 20031001, end: 20040327
  8. DIFFU K [Concomitant]
     Route: 048
  9. LEVOTHYROXINE SODIUM [Concomitant]
     Route: 048
     Dates: end: 20040327
  10. HYDROCORTISONE [Concomitant]
     Route: 048
     Dates: start: 20011001
  11. FLUDROCORTISONE [Concomitant]
     Route: 048
     Dates: start: 20011001

REACTIONS (8)
  - EOSINOPHILIA [None]
  - ERYTHEMA [None]
  - OEDEMA [None]
  - PRURITUS [None]
  - PYREXIA [None]
  - RENAL FAILURE [None]
  - SKIN TEST POSITIVE [None]
  - TRANSAMINASES INCREASED [None]
